FAERS Safety Report 25888023 (Version 2)
Quarter: 2025Q4

REPORT INFORMATION
  Report Type: Spontaneous
  Country: CA (occurrence: CA)
  Receive Date: 20251007
  Receipt Date: 20251226
  Transmission Date: 20260117
  Serious: Yes (Death, Hospitalization, Disabling, Congenital Anomaly)
  Sender: ROCHE
  Company Number: CA-ROCHE-10000399973

PATIENT
  Age: 40 Year
  Sex: Female
  Weight: 96 kg

DRUGS (29)
  1. RITUXIMAB [Suspect]
     Active Substance: RITUXIMAB
     Indication: Rheumatoid arthritis
  2. RITUXIMAB [Suspect]
     Active Substance: RITUXIMAB
     Route: 040
  3. RITUXIMAB [Suspect]
     Active Substance: RITUXIMAB
  4. RITUXIMAB [Suspect]
     Active Substance: RITUXIMAB
  5. RITUXIMAB [Suspect]
     Active Substance: RITUXIMAB
  6. RITUXIMAB [Suspect]
     Active Substance: RITUXIMAB
  7. RITUXIMAB [Suspect]
     Active Substance: RITUXIMAB
  8. RITUXIMAB [Suspect]
     Active Substance: RITUXIMAB
  9. RITUXIMAB [Suspect]
     Active Substance: RITUXIMAB
  10. RITUXIMAB [Suspect]
     Active Substance: RITUXIMAB
  11. RITUXIMAB [Suspect]
     Active Substance: RITUXIMAB
  12. RITUXIMAB [Suspect]
     Active Substance: RITUXIMAB
  13. RITUXIMAB [Suspect]
     Active Substance: RITUXIMAB
  14. RITUXIMAB [Suspect]
     Active Substance: RITUXIMAB
     Route: 043
  15. RITUXIMAB [Suspect]
     Active Substance: RITUXIMAB
     Indication: Rheumatoid arthritis
     Route: 040
  16. RITUXIMAB [Suspect]
     Active Substance: RITUXIMAB
     Route: 040
  17. RITUXIMAB [Suspect]
     Active Substance: RITUXIMAB
     Indication: Rheumatoid arthritis
     Route: 058
  18. ACTEMRA [Suspect]
     Active Substance: TOCILIZUMAB
     Indication: Rheumatoid arthritis
     Route: 058
  19. ACTEMRA [Suspect]
     Active Substance: TOCILIZUMAB
     Route: 058
  20. ACTEMRA [Suspect]
     Active Substance: TOCILIZUMAB
  21. ACTEMRA [Suspect]
     Active Substance: TOCILIZUMAB
     Route: 058
  22. ACTEMRA [Suspect]
     Active Substance: TOCILIZUMAB
  23. ACTEMRA [Suspect]
     Active Substance: TOCILIZUMAB
     Route: 058
  24. ACTEMRA [Suspect]
     Active Substance: TOCILIZUMAB
     Route: 040
  25. ACTEMRA [Suspect]
     Active Substance: TOCILIZUMAB
     Route: 058
  26. ACTEMRA [Suspect]
     Active Substance: TOCILIZUMAB
     Route: 058
  27. ACTEMRA [Suspect]
     Active Substance: TOCILIZUMAB
     Route: 058
  28. ACTEMRA [Suspect]
     Active Substance: TOCILIZUMAB
     Route: 058
  29. ACTEMRA [Suspect]
     Active Substance: TOCILIZUMAB
     Route: 058

REACTIONS (41)
  - Abdominal discomfort [Fatal]
  - Abdominal pain upper [Fatal]
  - Alopecia [Fatal]
  - Anti-cyclic citrullinated peptide antibody positive [Fatal]
  - Arthralgia [Fatal]
  - Asthenia [Fatal]
  - Blepharospasm [Fatal]
  - C-reactive protein abnormal [Fatal]
  - Condition aggravated [Fatal]
  - Diarrhoea [Fatal]
  - Drug hypersensitivity [Fatal]
  - Dry mouth [Fatal]
  - Maternal exposure during pregnancy [Fatal]
  - Finger deformity [Fatal]
  - Gait inability [Fatal]
  - Gastrointestinal disorder [Fatal]
  - Grip strength decreased [Fatal]
  - Headache [Fatal]
  - Hepatic enzyme increased [Fatal]
  - Hypercholesterolaemia [Fatal]
  - Hypersensitivity [Fatal]
  - Impaired healing [Fatal]
  - Infusion related reaction [Fatal]
  - Insomnia [Fatal]
  - Joint swelling [Fatal]
  - Lung disorder [Fatal]
  - Muscle injury [Fatal]
  - Musculoskeletal pain [Fatal]
  - Musculoskeletal stiffness [Fatal]
  - Nail disorder [Fatal]
  - Neck pain [Fatal]
  - Night sweats [Fatal]
  - Obesity [Fatal]
  - Pain in extremity [Fatal]
  - Peripheral venous disease [Fatal]
  - Product label confusion [Fatal]
  - Sleep disorder [Fatal]
  - Synovitis [Fatal]
  - Vomiting [Fatal]
  - Rash [Fatal]
  - Treatment failure [Fatal]
